FAERS Safety Report 5917972-6 (Version None)
Quarter: 2008Q4

REPORT INFORMATION
  Report Type: 
  Country: None (occurrence: None)
  Receive Date: 20081009
  Receipt Date: 20080922
  Transmission Date: 20090506
  Serious: Yes (Other)
  Sender: FDA-Public Use
  Company Number: 2008S1017200

PATIENT
  Age: 62 Year
  Sex: Female

DRUGS (3)
  1. ESCITALOPRAM [Suspect]
     Indication: MAJOR DEPRESSION
     Dosage: 10 MG;DAILY
  2. PALIPERIDONE (PALIPERIDONE) [Suspect]
     Indication: MAJOR DEPRESSION
     Dosage: 6 MG;DAILY
  3. QUETIAPINE FUMARATE [Concomitant]

REACTIONS (3)
  - AKATHISIA [None]
  - CHOREOATHETOSIS [None]
  - MYOCLONUS [None]
